FAERS Safety Report 17477224 (Version 2)
Quarter: 2020Q2

REPORT INFORMATION
  Report Type: Spontaneous
  Country: US (occurrence: US)
  Receive Date: 20200229
  Receipt Date: 20200501
  Transmission Date: 20200713
  Serious: Yes (Hospitalization, Other)
  Sender: FDA-Public Use
  Company Number: US-DRREDDYS-USA/USA/20/0120156

PATIENT
  Age: 45 Year
  Sex: Male

DRUGS (2)
  1. INVEGA SUSTENNA [Suspect]
     Active Substance: PALIPERIDONE PALMITATE
     Indication: SCHIZOPHRENIA
     Route: 030
  2. RISPERIDONE. [Suspect]
     Active Substance: RISPERIDONE
     Indication: SCHIZOPHRENIA
     Route: 065

REACTIONS (8)
  - Obesity [Unknown]
  - Dysphoria [Recovered/Resolved]
  - Sexual dysfunction [Unknown]
  - Atrioventricular block first degree [Recovered/Resolved]
  - Diabetes mellitus [Unknown]
  - Major depression [Recovered/Resolved]
  - Gynaecomastia [Unknown]
  - Blood prolactin increased [Unknown]
